FAERS Safety Report 5016869-6 (Version None)
Quarter: 2006Q2

REPORT INFORMATION
  Report Type: 
  Country: None (occurrence: None)
  Receive Date: 20060526
  Receipt Date: 20060515
  Transmission Date: 20061013
  Serious: Yes (Hospitalization)
  Sender: FDA-Public Use
  Company Number: FR_050907162

PATIENT
  Age: 60 Year
  Sex: Male
  Weight: 85 kg

DRUGS (6)
  1. ZYPREXA [Suspect]
     Indication: BIPOLAR I DISORDER
     Dosage: 10 MG, DAILY (1/D), ORAL
     Route: 048
     Dates: start: 20041124, end: 20050701
  2. DEPAKOTE [Concomitant]
  3. ANAFRANIL [Concomitant]
  4. STILNOX [Concomitant]
  5. AVLOCARDYL (PROPANOLOL) [Concomitant]
  6. XANAX [Concomitant]

REACTIONS (11)
  - COMA [None]
  - CONFUSIONAL STATE [None]
  - DEMENTIA [None]
  - DISTURBANCE IN ATTENTION [None]
  - DRUG INTERACTION [None]
  - ENCEPHALOPATHY [None]
  - HYPERAMMONAEMIA [None]
  - LOSS OF CONSCIOUSNESS [None]
  - MALAISE [None]
  - MUSCULAR WEAKNESS [None]
  - PARKINSONISM [None]
